FAERS Safety Report 11415635 (Version 2)
Quarter: 2016Q2

REPORT INFORMATION
  Report Type: Spontaneous
  Country: US (occurrence: US)
  Receive Date: 20150825
  Receipt Date: 20160608
  Transmission Date: 20160815
  Serious: Yes (Other)
  Sender: FDA-Public Use
  Company Number: US-SA-2015SA126653

PATIENT
  Sex: Female

DRUGS (1)
  1. LANTUS [Suspect]
     Active Substance: INSULIN GLARGINE
     Indication: DIABETES MELLITUS
     Route: 065

REACTIONS (5)
  - Vitreous floaters [Unknown]
  - Vision blurred [Unknown]
  - Movement disorder [Unknown]
  - Eye operation [Unknown]
  - Cerebrovascular accident [Unknown]
